FAERS Safety Report 5597036-4 (Version None)
Quarter: 2008Q1

REPORT INFORMATION
  Report Type: 
  Country: None (occurrence: None)
  Receive Date: 20080121
  Receipt Date: 20080115
  Transmission Date: 20080703
  Serious: Yes (Life-Threatening)
  Sender: FDA-Public Use
  Company Number: US-BAYER-200811326NA

PATIENT
  Age: 49 Year
  Sex: Male
  Weight: 73 kg

DRUGS (2)
  1. MAGNEVIST [Suspect]
     Indication: NUCLEAR MAGNETIC RESONANCE IMAGING
     Dosage: UNIT DOSE: 8 ML
     Route: 042
     Dates: start: 20080114, end: 20080114
  2. VALIUM [Concomitant]
     Route: 048
     Dates: start: 20080114, end: 20080114

REACTIONS (4)
  - LIP SWELLING [None]
  - RASH [None]
  - SNEEZING [None]
  - THROAT TIGHTNESS [None]
